FAERS Safety Report 23461619 (Version 1)
Quarter: 2024Q1

REPORT INFORMATION
  Report Type: Spontaneous
  Country: CN (occurrence: CN)
  Receive Date: 20240131
  Receipt Date: 20240131
  Transmission Date: 20240410
  Serious: Yes (Hospitalization, Other)
  Sender: FDA-Public Use
  Company Number: CN-BAYER-2024A016813

PATIENT
  Age: 75 Year
  Sex: Male
  Weight: 60 kg

DRUGS (5)
  1. AVELOX [Suspect]
     Active Substance: MOXIFLOXACIN HYDROCHLORIDE
     Indication: Skin infection
     Dosage: 400 MG, QD
     Route: 048
     Dates: start: 20240119, end: 20240120
  2. AVELOX [Suspect]
     Active Substance: MOXIFLOXACIN HYDROCHLORIDE
     Indication: Lymphangitis
  3. MEROPENEM [Suspect]
     Active Substance: MEROPENEM
     Indication: Skin infection
     Dosage: 0.5 G, 2 HOURS, BID, PUMP INJECTION
     Route: 050
     Dates: start: 20240120, end: 20240121
  4. MOXIFLOXACIN HYDROCHLORIDE [Suspect]
     Active Substance: MOXIFLOXACIN HYDROCHLORIDE\MOXIFLOXACIN HYDROCHLORIDE MONOHYDRATE
     Indication: Skin infection
     Dosage: 400 MG, QD
     Route: 041
     Dates: start: 20240118, end: 20240118
  5. CEFAZOLIN SODIUM [Concomitant]
     Active Substance: CEFAZOLIN SODIUM
     Dosage: 1 G, QD
     Route: 041
     Dates: start: 20240119

REACTIONS (7)
  - Metabolic encephalopathy [Recovering/Resolving]
  - Hallucination [Recovering/Resolving]
  - Delirium [Not Recovered/Not Resolved]
  - Dysphoria [Recovering/Resolving]
  - Confusional state [Recovering/Resolving]
  - Mental disorder [None]
  - Pain in extremity [None]

NARRATIVE: CASE EVENT DATE: 20240120
